FAERS Safety Report 24276035 (Version 1)
Quarter: 2024Q3

REPORT INFORMATION
  Report Type: Report from Study
  Country: US (occurrence: US)
  Receive Date: 20240903
  Receipt Date: 20240903
  Transmission Date: 20241016
  Serious: Yes (Death)
  Sender: INSMED
  Company Number: US-INSMED, INC.-2024-03393-US

PATIENT
  Age: 84 Year
  Sex: Male

DRUGS (1)
  1. ARIKAYCE [Suspect]
     Active Substance: AMIKACIN
     Indication: Mycobacterium avium complex infection
     Dosage: UNK UNK, UNK
     Route: 055
     Dates: start: 20230724

REACTIONS (1)
  - Death [Fatal]

NARRATIVE: CASE EVENT DATE: 20240716
